FAERS Safety Report 5406169-4 (Version None)
Quarter: 2007Q4

REPORT INFORMATION
  Report Type: 
  Country: None (occurrence: None)
  Receive Date: 20070802
  Receipt Date: 20070802
  Transmission Date: 20080405
  Serious: No
  Sender: FDA-Public Use
  Company Number: None

PATIENT
  Age: 60 Year
  Sex: Female
  Weight: 69.8539 kg

DRUGS (4)
  1. FOSAMAX PLUS D [Suspect]
     Indication: OSTEOPENIA
     Dosage: ONE TABLET ONE TIME PO
     Route: 048
     Dates: start: 20070726, end: 20070726
  2. FLOVENT [Concomitant]
  3. OSCAL PLUS D [Concomitant]
  4. CALTRATE PLUS D [Concomitant]

REACTIONS (4)
  - BONE PAIN [None]
  - POLYDIPSIA [None]
  - POLYURIA [None]
  - PYREXIA [None]
